FAERS Safety Report 8810407 (Version 3)
Quarter: 2014Q1

REPORT INFORMATION
  Report Type: Report from Study
  Country: JP (occurrence: JP)
  Receive Date: 20120926
  Receipt Date: 20140303
  Transmission Date: 20141002
  Serious: Yes (Death)
  Sender: FDA-Public Use
  Company Number: JP-BRISTOL-MYERS SQUIBB COMPANY-16979346

PATIENT
  Age: 69 Year
  Sex: Male
  Weight: 60 kg

DRUGS (3)
  1. ORENCIA FOR INJ 250 MG/VIAL [Suspect]
     Indication: RHEUMATOID ARTHRITIS
     Dosage: LAST DOSE ON 06JUL2012
     Route: 041
     Dates: start: 20120706
  2. ENBREL [Suspect]
     Dates: start: 20120420, end: 20120706
  3. PREDNISOLONE [Concomitant]
     Dates: start: 20120110

REACTIONS (1)
  - Acute disseminated encephalomyelitis [Fatal]
